FAERS Safety Report 16345029 (Version 1)
Quarter: 2019Q2

REPORT INFORMATION
  Report Type: Spontaneous
  Country: IE (occurrence: IE)
  Receive Date: 20190523
  Receipt Date: 20190523
  Transmission Date: 20190711
  Serious: Yes (Other)
  Sender: FDA-Public Use
  Company Number: PHHY2019IE113582

PATIENT
  Age: 73 Year
  Sex: Female

DRUGS (6)
  1. SERC [Concomitant]
     Dosage: 60 MG, Q8H,DOSE INCREASE WAS PART OF TREATMENT OF SUSPECTED REACTIONS
     Route: 065
  2. VALSARTAN KRKA [Concomitant]
     Indication: PRODUCT USED FOR UNKNOWN INDICATION
     Dosage: 80 MG, Q24H
     Route: 065
  3. SERC [Concomitant]
     Indication: PRODUCT USED FOR UNKNOWN INDICATION
     Dosage: 60 MG, Q12H, OVER 1 YEAR
     Route: 065
  4. BISOPROLOL [Suspect]
     Active Substance: BISOPROLOL
     Indication: PALPITATIONS
     Dosage: 1.25 MG,18 MONTHS IN TOTAL, STOPPED FOR 6 MONTHS AND THEN WENT BACK ON TREATMENT
     Route: 048
  5. BISOPROLOL [Suspect]
     Active Substance: BISOPROLOL
     Dosage: 1.25 MG,  18 MONTHS IN TOTAL, STOPPED FOR 6 MONTHS AND THEN WENT BACK ON TREATMENT
     Route: 048
  6. VIMOVO [Concomitant]
     Active Substance: ESOMEPRAZOLE MAGNESIUM\NAPROXEN
     Indication: ARTHRITIS
     Dosage: UNK UNK, Q24H
     Route: 065

REACTIONS (3)
  - Syncope [Not Recovered/Not Resolved]
  - Dizziness [Not Recovered/Not Resolved]
  - Loss of consciousness [Not Recovered/Not Resolved]

NARRATIVE: CASE EVENT DATE: 20190422
